FAERS Safety Report 5400787-5 (Version None)
Quarter: 2007Q3

REPORT INFORMATION
  Report Type: 
  Country: None (occurrence: None)
  Receive Date: 20070726
  Receipt Date: 20070713
  Transmission Date: 20080115
  Serious: Yes (Hospitalization)
  Sender: FDA-Public Use
  Company Number: 2006BI016528

PATIENT
  Age: 47 Year
  Sex: Female

DRUGS (16)
  1. NATALIZUMAB [Suspect]
     Indication: MULTIPLE SCLEROSIS
     Dosage: 300 MG; QM; IV
     Route: 042
     Dates: start: 20050101, end: 20050101
  2. NATALIZUMAB [Suspect]
     Indication: MULTIPLE SCLEROSIS
     Dosage: 300 MG; QM; IV
     Route: 042
     Dates: start: 20060914
  3. PERCOCET [Concomitant]
  4. PRILOSEC [Concomitant]
  5. NEURONTIN [Concomitant]
  6. ALBUTEROL [Concomitant]
  7. BACLOFEN [Concomitant]
  8. KLONOPIN [Concomitant]
  9. REGLAN [Concomitant]
  10. FLONASE [Concomitant]
  11. COUMADIN [Concomitant]
  12. DITROPAN XL [Concomitant]
  13. SENNA [Concomitant]
  14. POTASSIUM CHLORIDE [Concomitant]
  15. METHOCARBAMOL [Concomitant]
  16. BACLOFEN [Concomitant]

REACTIONS (3)
  - PNEUMONIA [None]
  - PULMONARY EMBOLISM [None]
  - REFUSAL OF TREATMENT BY PATIENT [None]
